FAERS Safety Report 7561301-1 (Version None)
Quarter: 2011Q2

REPORT INFORMATION
  Report Type: 
  Country: None (occurrence: None)
  Receive Date: 20110621
  Receipt Date: 20101209
  Transmission Date: 20111010
  Serious: No
  Sender: FDA-Public Use
  Company Number: US-ASTRAZENECA-2010SE51810

PATIENT
  Age: 72 Year
  Sex: Female

DRUGS (10)
  1. MULTI VIT [Concomitant]
  2. LOVAZA [Concomitant]
  3. FLECAINIDE ACETATE [Concomitant]
  4. CALANTAN [Concomitant]
  5. PULMICORT FLEXHALER [Suspect]
     Indication: ASTHMA
     Route: 055
  6. DILTIAZEM [Concomitant]
  7. SPIRONOLACTONE [Concomitant]
  8. CALTRATE D [Concomitant]
  9. SUPER B COMPLEX [Concomitant]
  10. ACTONEL [Concomitant]
     Dosage: UNKNOWN DOSE WEEKLY

REACTIONS (1)
  - PNEUMONIA [None]
